FAERS Safety Report 10083670 (Version 1)
Quarter: 2014Q2

REPORT INFORMATION
  Report Type: Spontaneous
  Country: US (occurrence: US)
  Receive Date: 20140417
  Receipt Date: 20140417
  Transmission Date: 20141212
  Serious: No
  Sender: FDA-Public Use
  Company Number: US-PFIZER INC-2014107858

PATIENT
  Age: 46 Year
  Sex: Female
  Weight: 49.89 kg

DRUGS (1)
  1. RELPAX [Suspect]
     Indication: MIGRAINE
     Dosage: 20 MG, AS NEEDED

REACTIONS (2)
  - Nausea [Unknown]
  - Dizziness [Unknown]
